FAERS Safety Report 10425925 (Version 1)
Quarter: 2014Q3

REPORT INFORMATION
  Report Type: Report from Study
  Country: US (occurrence: US)
  Receive Date: 20140903
  Receipt Date: 20140903
  Transmission Date: 20150326
  Serious: Yes (Death, Hospitalization)
  Sender: FDA-Public Use
  Company Number: US-BIOGENIDEC-2014BI086050

PATIENT
  Sex: Male

DRUGS (1)
  1. TYSABRI [Suspect]
     Active Substance: NATALIZUMAB
     Indication: MULTIPLE SCLEROSIS
     Route: 042
     Dates: start: 20070103

REACTIONS (5)
  - Lymphoma [Fatal]
  - Neoplasm malignant [Fatal]
  - Bladder mass [Fatal]
  - Renal failure acute [Fatal]
  - Respiratory distress [Fatal]
